FAERS Safety Report 16418228 (Version 1)
Quarter: 2019Q2

REPORT INFORMATION
  Report Type: Spontaneous
  Country: SE (occurrence: SE)
  Receive Date: 20190612
  Receipt Date: 20190612
  Transmission Date: 20190711
  Serious: Yes (Other)
  Sender: FDA-Public Use
  Company Number: SE-AUROBINDO-AUR-APL-2019-032437

PATIENT

DRUGS (4)
  1. GABAPENTIN CAPSULES [Suspect]
     Active Substance: GABAPENTIN
     Indication: PAIN
     Dosage: 26/9 300 MG EN G?NG DAGLIGEN I UPPTRAPPANDE DOS
     Route: 048
     Dates: start: 20180926, end: 20181018
  2. GABAPENTIN CAPSULES [Suspect]
     Active Substance: GABAPENTIN
     Dosage: ^TRAPPADES UPP TILL MAXIMAL DOS 1+1+2 (2400 MG /D) TILL DEN 11/12^
     Route: 048
     Dates: start: 20181211, end: 20181217
  3. GABAPENTIN CAPSULES [Suspect]
     Active Substance: GABAPENTIN
     Dosage: SUCCESIVT ?KNING TILL 19/10 TILL 600 MG 1X3, D?REFTER FORTSATT  UPPTRAPPANDE DOS
     Route: 048
     Dates: start: 20181019, end: 20181210
  4. GABAPENTIN CAPSULES [Suspect]
     Active Substance: GABAPENTIN
     Dosage: 20181218, B?RJADE NEDTRAPPNING AV DOS. UTSATT 2019-01-01
     Route: 048
     Dates: start: 20181218, end: 20190101

REACTIONS (3)
  - Muscle spasms [Recovered/Resolved]
  - Pleurisy [Recovered/Resolved]
  - Pancreatitis [Recovered/Resolved]

NARRATIVE: CASE EVENT DATE: 20181010
